FAERS Safety Report 9240775 (Version 3)
Quarter: 2013Q2

REPORT INFORMATION
  Report Type: Report from Study
  Country: JP (occurrence: JP)
  Receive Date: 20130418
  Receipt Date: 20130520
  Transmission Date: 20140414
  Serious: Yes (Death, Life-Threatening)
  Sender: FDA-Public Use
  Company Number: JP-OTSUKA-JP-2013-10938

PATIENT
  Age: 84 Year
  Sex: Female
  Weight: 41.1 kg

DRUGS (17)
  1. SAMSCA [Suspect]
     Indication: FLUID RETENTION
     Dosage: 15 MG MILLIGRAM(S), QAM
     Route: 048
     Dates: start: 20130326, end: 20130328
  2. SAMSCA [Suspect]
     Dosage: 7.5 MG MILLIGRAM(S), QAM
     Route: 048
     Dates: start: 20130329, end: 20130329
  3. MIRCERA [Concomitant]
     Dosage: 50 MCG, DAILY DOSE
     Route: 030
     Dates: end: 20130321
  4. BUFFERIN [Concomitant]
     Dosage: 81 MG MILLIGRAM(S), DAILY DOSE
     Route: 048
     Dates: end: 20130329
  5. CRESTOR [Concomitant]
     Dosage: 2.5 MG MILLIGRAM(S), DAILY DOSE
     Route: 048
     Dates: end: 20130329
  6. FERROMIA [Concomitant]
     Dosage: 50 MG MILLIGRAM(S), DAILY DOSE
     Route: 048
     Dates: end: 20130329
  7. BLOPRESS [Concomitant]
     Dosage: 8 MG MILLIGRAM(S), DAILY DOSE
     Route: 048
     Dates: end: 20130329
  8. UBRETID [Concomitant]
     Dosage: 5 MG MILLIGRAM(S), DAILY DOSE
     Route: 048
     Dates: end: 20130329
  9. EBRANTIL [Concomitant]
     Dosage: 60 MG MILLIGRAM(S), DAILY DOSE
     Route: 048
     Dates: end: 20130329
  10. PLETAAL [Concomitant]
     Dosage: 200 MG MILLIGRAM(S), DAILY DOSE
     Route: 048
     Dates: end: 20130329
  11. ANPLAG [Concomitant]
     Dosage: 300 MG MILLIGRAM(S), DAILY DOSE
     Route: 048
     Dates: end: 20130329
  12. TAKEPRON [Concomitant]
     Indication: PROPHYLAXIS
     Dosage: 15 MG MILLIGRAM(S), DAILY DOSE
     Route: 048
     Dates: end: 20130329
  13. ALDACTONE A [Concomitant]
     Indication: CARDIAC FAILURE
     Dosage: 25 MG MILLIGRAM(S), DAILY DOSE
     Route: 048
     Dates: end: 20130329
  14. DIART [Concomitant]
     Indication: CARDIAC FAILURE
     Dosage: 60 MG MILLIGRAM(S), DAILY DOSE
     Route: 048
     Dates: end: 20130329
  15. HANP [Concomitant]
     Indication: CARDIAC FAILURE
     Dosage: 4320 MCG, DAILY DOSE
     Route: 041
     Dates: end: 20130329
  16. PREDOPA [Concomitant]
     Indication: CARDIAC FAILURE
     Dosage: 86.4 MG MILLIGRAM(S), DAILY DOSE
     Route: 041
     Dates: end: 20130329
  17. FLUMARIN [Concomitant]
     Dosage: 2 G GRAM(S), DAILY DOSE
     Route: 041
     Dates: end: 20130403

REACTIONS (3)
  - Torsade de pointes [Fatal]
  - Hyperuricaemia [Not Recovered/Not Resolved]
  - Hypernatraemia [Recovered/Resolved]
